FAERS Safety Report 5929350-4 (Version None)
Quarter: 2008Q4

REPORT INFORMATION
  Report Type: 
  Country: None (occurrence: None)
  Receive Date: 20081024
  Receipt Date: 20081020
  Transmission Date: 20090506
  Serious: Yes (Hospitalization)
  Sender: FDA-Public Use
  Company Number: US-BRACCO-001953

PATIENT
  Sex: Female

DRUGS (2)
  1. ISOVUE-300 [Suspect]
     Indication: COMPUTERISED TOMOGRAM
     Route: 042
     Dates: start: 20081010, end: 20081010
  2. I.V. SOLUTIONS [Concomitant]
     Route: 042
     Dates: start: 20081009, end: 20081009

REACTIONS (2)
  - COMPARTMENT SYNDROME [None]
  - INJECTION SITE EXTRAVASATION [None]
